FAERS Safety Report 18052234 (Version 8)
Quarter: 2021Q1

REPORT INFORMATION
  Report Type: Report from Study
  Country: JP (occurrence: JP)
  Receive Date: 20200722
  Receipt Date: 20210219
  Transmission Date: 20210419
  Serious: Yes (Hospitalization)
  Sender: FDA-Public Use
  Company Number: JP-ROCHE-2643532

PATIENT
  Age: 74 Year
  Sex: Female
  Weight: 46.2 kg

DRUGS (44)
  1. LIPITOR [Concomitant]
     Active Substance: ATORVASTATIN CALCIUM
     Dosage: THE BEGINNING OF DOSAGE DAY: BEFORE ACQUIRING AGREEMENT
     Route: 048
  2. REBAMIPIDE [Concomitant]
     Active Substance: REBAMIPIDE
     Dosage: THE BEGINNING OF DOSAGE DAY: BEFORE ACQUIRING AGREEMENT
     Route: 048
  3. HOKUNALIN [Concomitant]
     Active Substance: TULOBUTEROL
     Dosage: THE BEGINNING OF DOSAGE DAY: BEFORE ACQUIRING AGREEMENT
     Route: 062
  4. AZUNOL [Concomitant]
     Indication: STOMATITIS
     Route: 061
     Dates: start: 20200618
  5. ACELIO [Concomitant]
     Active Substance: ACETAMINOPHEN
     Route: 042
     Dates: start: 20200620, end: 20200621
  6. LIDOMEX [Concomitant]
     Active Substance: PREDNISOLONE VALERATE ACETATE
     Route: 061
     Dates: start: 20191211, end: 20200531
  7. DEXART [Concomitant]
     Active Substance: DEXAMETHASONE SODIUM PHOSPHATE
     Indication: PROPHYLAXIS
     Route: 042
     Dates: start: 20200611
  8. ATEZOLIZUMAB. [Suspect]
     Active Substance: ATEZOLIZUMAB
     Indication: SMALL CELL LUNG CANCER
     Dosage: DATE OF MOST RECENT DOSE OF ATEZOLIZUMAB PRIOR TO SAE ONSET: 02/JUL/2020
     Route: 041
     Dates: start: 20200611
  9. CARBOPLATIN. [Suspect]
     Active Substance: CARBOPLATIN
     Route: 041
     Dates: start: 20200702
  10. ETOPOSIDE. [Suspect]
     Active Substance: ETOPOSIDE
     Dosage: THIS IS THE MOST RECENT DOSE OF ETOPOSIDE PRIOR TO AE ONSET
     Route: 041
     Dates: start: 20200613
  11. MICARDIS [Concomitant]
     Active Substance: TELMISARTAN
     Indication: HYPERTENSION
     Route: 048
     Dates: start: 20180518
  12. LUNESTA [Concomitant]
     Active Substance: ESZOPICLONE
     Dosage: THE BEGINNING OF DOSAGE DAY: BEFORE ACQUIRING AGREEMENT
     Route: 048
  13. TAKECAB [Concomitant]
     Active Substance: VONOPRAZAN FUMARATE
     Dosage: THE BEGINNING OF DOSAGE DAY: BEFORE ACQUIRING AGREEMENT
     Route: 048
  14. SENNOSIDE [Concomitant]
     Active Substance: SENNOSIDES
     Indication: CONSTIPATION
     Dosage: SINGLE USE
     Route: 048
     Dates: start: 20200613
  15. MIYA?BM [Concomitant]
     Active Substance: CLOSTRIDIUM BUTYRICUM SPORES STRAIN M-55
     Indication: CONSTIPATION
     Route: 048
     Dates: start: 20200618
  16. AZUNOL [Concomitant]
     Dosage: PROPER QUANTITY AND SINGLE USE
     Route: 061
     Dates: start: 20200613
  17. NITROPEN [Concomitant]
     Active Substance: NITROGLYCERIN
     Route: 060
     Dates: start: 20200416
  18. DIQUAS [Concomitant]
     Active Substance: DIQUAFOSOL TETRASODIUM
     Route: 047
     Dates: start: 2017
  19. FLUTIFORM [Concomitant]
     Active Substance: FLUTICASONE PROPIONATE\FORMOTEROL FUMARATE
     Route: 065
     Dates: start: 20200930
  20. CARBOPLATIN. [Suspect]
     Active Substance: CARBOPLATIN
     Indication: SMALL CELL LUNG CANCER
     Dosage: AUC5
     Route: 041
     Dates: start: 20200611
  21. ETOPOSIDE. [Suspect]
     Active Substance: ETOPOSIDE
     Indication: SMALL CELL LUNG CANCER
     Dosage: THREE DAYS
     Route: 041
     Dates: start: 20200611
  22. NORVASC [Concomitant]
     Active Substance: AMLODIPINE BESYLATE
     Dosage: THE BEGINNING OF DOSAGE DAY: BEFORE ACQUIRING AGREEMENT
     Route: 048
  23. LIPITOR [Concomitant]
     Active Substance: ATORVASTATIN CALCIUM
     Indication: HYPERLIPIDAEMIA
     Route: 048
     Dates: start: 20180518
  24. LIVOSTIN [Concomitant]
     Active Substance: LEVOCABASTINE HYDROCHLORIDE
     Route: 047
     Dates: start: 2017
  25. DIFLORASONE DIACETATE. [Concomitant]
     Active Substance: DIFLORASONE DIACETATE
     Route: 061
     Dates: start: 20200601
  26. DEXAMETHASONE. [Concomitant]
     Active Substance: DEXAMETHASONE
     Indication: STOMATITIS
     Dosage: PROPER QUANTITY AND SINGLE USE
     Dates: start: 20200612, end: 20200622
  27. CISPLATIN. [Suspect]
     Active Substance: CISPLATIN
     Indication: SMALL CELL LUNG CANCER
     Route: 042
  28. NORVASC [Concomitant]
     Active Substance: AMLODIPINE BESYLATE
     Indication: HYPERTENSION
     Route: 048
     Dates: start: 20180518
  29. MOHRUS L [Concomitant]
     Active Substance: KETOPROFEN
     Route: 061
     Dates: start: 20200109
  30. LOXOPROFEN NA [Concomitant]
     Active Substance: LOXOPROFEN SODIUM
     Route: 048
     Dates: start: 20200621, end: 20200621
  31. FLUTIFORM [Concomitant]
     Active Substance: FLUTICASONE PROPIONATE\FORMOTEROL FUMARATE
     Indication: CHRONIC OBSTRUCTIVE PULMONARY DISEASE
     Route: 055
     Dates: start: 20180518
  32. FLUTIFORM [Concomitant]
     Active Substance: FLUTICASONE PROPIONATE\FORMOTEROL FUMARATE
     Dosage: THE BEGINNING OF DOSAGE DAY: BEFORE ACQUIRING AGREEMENT
     Route: 055
  33. DEXART [Concomitant]
     Active Substance: DEXAMETHASONE SODIUM PHOSPHATE
     Dosage: DOSE INTERVAL UNCERTAINTY
     Route: 042
     Dates: start: 20200612
  34. MICARDIS [Concomitant]
     Active Substance: TELMISARTAN
     Dosage: THE BEGINNING OF DOSAGE DAY: BEFORE ACQUIRING AGREEMENT
     Route: 048
  35. HOKUNALIN [Concomitant]
     Active Substance: TULOBUTEROL
     Indication: CHRONIC OBSTRUCTIVE PULMONARY DISEASE
     Route: 062
     Dates: start: 20200318
  36. AZUNOL GARGLE LIQUID [Concomitant]
     Indication: STOMATITIS
     Dosage: PROPER QUANTITY
     Dates: start: 20200618
  37. G?LASTA [Concomitant]
     Active Substance: PEGFILGRASTIM
     Indication: PROPHYLAXIS
     Route: 058
     Dates: start: 20200614
  38. FILGRASTIM BS [Concomitant]
     Active Substance: FILGRASTIM
     Route: 058
     Dates: start: 20200620, end: 20200621
  39. BLINDED BEVACIZUMAB [Suspect]
     Active Substance: BEVACIZUMAB
     Indication: SMALL CELL LUNG CANCER
     Dosage: DATE OF MOST RECENT DOSE OF BEVACIZUMAB PRIOR TO SAE ONSET: 02/JUL/2020
     Route: 042
     Dates: start: 20200611
  40. ETOPOSIDE. [Suspect]
     Active Substance: ETOPOSIDE
     Dosage: DATE OF MOST RECENT DOSE OF ETOPOSIDE PRIOR TO SAE ONSET: 04/JUL/2020
     Route: 041
     Dates: start: 20200702
  41. REBAMIPIDE [Concomitant]
     Active Substance: REBAMIPIDE
     Indication: HIATUS HERNIA
     Route: 048
     Dates: start: 20190425
  42. LUNESTA [Concomitant]
     Active Substance: ESZOPICLONE
     Indication: INSOMNIA
     Route: 065
     Dates: start: 20190425
  43. TAKECAB [Concomitant]
     Active Substance: VONOPRAZAN FUMARATE
     Indication: HIATUS HERNIA
     Route: 065
     Dates: start: 20190814
  44. FLUTIFORM [Concomitant]
     Active Substance: FLUTICASONE PROPIONATE\FORMOTEROL FUMARATE
     Dosage: DOSE: 6 OTHER
     Route: 050
     Dates: start: 20201001

REACTIONS (4)
  - Dehydration [Recovered/Resolved]
  - White blood cell count decreased [Recovered/Resolved]
  - Febrile neutropenia [Recovered/Resolved]
  - Myositis [Recovering/Resolving]

NARRATIVE: CASE EVENT DATE: 20200620
